FAERS Safety Report 11775336 (Version 11)
Quarter: 2017Q4

REPORT INFORMATION
  Report Type: Spontaneous
  Country: US (occurrence: US)
  Receive Date: 20151125
  Receipt Date: 20171226
  Transmission Date: 20180320
  Serious: No
  Sender: FDA-Public Use
  Company Number: US-ACTELION PHARMACEUTICALS US, INC.-A-US2015-114107

PATIENT
  Age: 66 Year
  Sex: Female
  Weight: 74.83 kg

DRUGS (3)
  1. VELETRI [Suspect]
     Active Substance: EPOPROSTENOL
     Dosage: 44.3 NG/KG, PER MIN
     Route: 042
     Dates: start: 20110810
  2. VELETRI [Suspect]
     Active Substance: EPOPROSTENOL
     Indication: PULMONARY ARTERIAL HYPERTENSION
     Dosage: 57 NG/KG, PER MIN
     Route: 042
  3. VELETRI [Suspect]
     Active Substance: EPOPROSTENOL
     Dosage: 58.3 NG/KG, PER MIN
     Route: 042

REACTIONS (22)
  - Hair texture abnormal [Unknown]
  - Feeling abnormal [Unknown]
  - Limb discomfort [Unknown]
  - Back pain [Unknown]
  - Functional gastrointestinal disorder [Unknown]
  - Hypoaesthesia [Unknown]
  - Pain in extremity [Unknown]
  - Nasopharyngitis [Unknown]
  - Rash [Unknown]
  - Rash generalised [Unknown]
  - Paraesthesia [Unknown]
  - Candida infection [Unknown]
  - Neuropathy peripheral [Unknown]
  - Alopecia [Unknown]
  - Pain [Unknown]
  - Pain in jaw [Unknown]
  - Vaginal disorder [Unknown]
  - Flushing [Unknown]
  - Musculoskeletal pain [Unknown]
  - Headache [Unknown]
  - Gastric infection [Unknown]
  - Walking distance test abnormal [Unknown]

NARRATIVE: CASE EVENT DATE: 20170510
